FAERS Safety Report 6079752-3 (Version None)
Quarter: 2009Q1

REPORT INFORMATION
  Report Type: 
  Country: None (occurrence: None)
  Receive Date: 20090217
  Receipt Date: 20090209
  Transmission Date: 20090719
  Serious: Yes (Hospitalization)
  Sender: FDA-Public Use
  Company Number: DE-ELI_LILLY_AND_COMPANY-DE200902002201

PATIENT

DRUGS (3)
  1. GEMCITABINE HCL [Suspect]
     Indication: B-CELL LYMPHOMA
     Dosage: 1330 MG, UNK
     Dates: start: 20070807
  2. OXALIPLATIN [Suspect]
     Indication: B-CELL LYMPHOMA
     Dosage: 93 MG, UNK
     Dates: start: 20070807
  3. RITUXIMAB [Concomitant]
     Indication: B-CELL LYMPHOMA
     Dosage: 500 MG, UNK
     Dates: start: 20070807

REACTIONS (7)
  - DYSAESTHESIA [None]
  - FALL [None]
  - FEELING COLD [None]
  - HYPOAESTHESIA [None]
  - POLYNEUROPATHY [None]
  - VERTIGO [None]
  - VISUAL IMPAIRMENT [None]
